FAERS Safety Report 11789946 (Version 1)
Quarter: 2015Q4

REPORT INFORMATION
  Report Type: Spontaneous
  Country: US (occurrence: US)
  Receive Date: 20151201
  Receipt Date: 20151201
  Transmission Date: 20160305
  Serious: No
  Sender: FDA-Public Use
  Company Number: US-PURDUE-USA-2015-0126052

PATIENT
  Age: 60 Year
  Sex: Female

DRUGS (1)
  1. OXYCODONE/ ACETAMINOPHEN TABLETS [Suspect]
     Active Substance: ACETAMINOPHEN\OXYCODONE HYDROCHLORIDE
     Indication: PAIN
     Dosage: 5/325MG - 3 TABLET, DAILY
     Route: 048
     Dates: start: 2013

REACTIONS (3)
  - Dry skin [Unknown]
  - Tooth disorder [Unknown]
  - Swelling face [Unknown]

NARRATIVE: CASE EVENT DATE: 2013
